FAERS Safety Report 11240075 (Version 1)
Quarter: 2015Q3

REPORT INFORMATION
  Report Type: Spontaneous
  Country: US (occurrence: None)
  Receive Date: 20150701
  Receipt Date: 20150701
  Transmission Date: 20151125
  Serious: Yes (Other)
  Sender: FDA-Public Use
  Company Number: None

PATIENT
  Age: 63 Year
  Sex: Female
  Weight: 86.18 kg

DRUGS (6)
  1. LEVOFLOXACIN 500MG 500MG TAB CADILA HEALTHCARE LTD. PINMEDABAD INDIA/ZYDUS PHARMACEUT USA INC [Suspect]
     Active Substance: LEVOFLOXACIN
     Indication: RESPIRATORY DISORDER
     Route: 048
     Dates: start: 20150527, end: 20150603
  2. ATORVASTATIN [Concomitant]
     Active Substance: ATORVASTATIN
  3. ARTHROTEC [Concomitant]
     Active Substance: DICLOFENAC SODIUM\MISOPROSTOL
  4. CYMBALTA [Concomitant]
     Active Substance: DULOXETINE HYDROCHLORIDE
  5. CLARITIN [Concomitant]
     Active Substance: LORATADINE
  6. ATENCL/CHLOR [Concomitant]

REACTIONS (17)
  - Activities of daily living impaired [None]
  - Dizziness [None]
  - Joint swelling [None]
  - Visual impairment [None]
  - Fatigue [None]
  - Loss of consciousness [None]
  - Decreased appetite [None]
  - Hypoaesthesia [None]
  - Peripheral swelling [None]
  - Gait disturbance [None]
  - Fall [None]
  - Confusional state [None]
  - Dysphonia [None]
  - Asthenia [None]
  - Arthralgia [None]
  - Paraesthesia [None]
  - Arthropathy [None]

NARRATIVE: CASE EVENT DATE: 20150529
